FAERS Safety Report 6086950-1 (Version None)
Quarter: 2009Q1

REPORT INFORMATION
  Report Type: 
  Country: None (occurrence: None)
  Receive Date: 20090223
  Receipt Date: 20090210
  Transmission Date: 20090719
  Serious: Yes (Other)
  Sender: FDA-Public Use
  Company Number: US-ROCHE-607371

PATIENT
  Sex: Male

DRUGS (10)
  1. PEG-INTERFERON A-2A (RO 25-8310) [Suspect]
     Indication: HEPATITIS C
     Dosage: FORM: PFS
     Route: 030
     Dates: start: 20080813, end: 20090112
  2. RIBAVIRIN [Suspect]
     Indication: HEPATITIS C
     Dosage: DOSE: 5 CAPSULES DAILY.
     Route: 048
     Dates: start: 20080813, end: 20090112
  3. INSULIN [Concomitant]
     Dosage: TAKEN 40 MG IN MORNING AND 35 MG IN EVENING. DRUG: NOVOLOG INSULIN 70/30.
  4. HYDROCHLOROTHIAZIDE [Concomitant]
  5. ENALAPRIL [Concomitant]
     Dosage: DRUG: ENALAPRIL/VASOTEC.
  6. LEVOTHYROXINE SODIUM [Concomitant]
  7. ATENOLOL [Concomitant]
  8. ASPIRIN [Concomitant]
  9. NITROGLYCERIN [Concomitant]
  10. LYRICA [Concomitant]

REACTIONS (7)
  - COUGH [None]
  - EYE HAEMORRHAGE [None]
  - HEADACHE [None]
  - MYODESOPSIA [None]
  - PAIN [None]
  - RETINAL EXUDATES [None]
  - SNEEZING [None]
